FAERS Safety Report 8341557-8 (Version None)
Quarter: 2012Q2

REPORT INFORMATION
  Report Type: 
  Country: None (occurrence: None)
  Receive Date: 20120507
  Receipt Date: 20120427
  Transmission Date: 20120825
  Serious: Yes (Hospitalization, Other)
  Sender: FDA-Public Use
  Company Number: US-ASTRAZENECA-2010SE42649

PATIENT
  Age: 52 Year
  Sex: Female

DRUGS (3)
  1. BAKING SODA [Concomitant]
  2. NEXIUM [Suspect]
     Route: 048
  3. GAS PILLS [Concomitant]

REACTIONS (7)
  - ABDOMINAL DISCOMFORT [None]
  - PNEUMONIA [None]
  - MALAISE [None]
  - MYOCARDIAL INFARCTION [None]
  - SPINAL FRACTURE [None]
  - INTENTIONAL DRUG MISUSE [None]
  - APHAGIA [None]
